FAERS Safety Report 22975240 (Version 3)
Quarter: 2023Q4

REPORT INFORMATION
  Report Type: Report from Study
  Country: US (occurrence: US)
  Receive Date: 20230924
  Receipt Date: 20231023
  Transmission Date: 20240109
  Serious: Yes (Other)
  Sender: FDA-Public Use
  Company Number: US-002147023-NVSC2023US203148

PATIENT
  Sex: Female

DRUGS (1)
  1. KISQALI [Suspect]
     Active Substance: RIBOCICLIB
     Indication: Product used for unknown indication
     Dosage: UNK
     Route: 065

REACTIONS (8)
  - Pulmonary oedema [Unknown]
  - Feeling abnormal [Unknown]
  - Feeling cold [Unknown]
  - Abnormal faeces [Unknown]
  - Peripheral swelling [Unknown]
  - Abdominal distension [Unknown]
  - Skin mass [Unknown]
  - Decreased appetite [Unknown]
